FAERS Safety Report 6264545-4 (Version None)
Quarter: 2009Q3

REPORT INFORMATION
  Report Type: 
  Country: None (occurrence: None)
  Receive Date: 20090710
  Receipt Date: 20090629
  Transmission Date: 20100115
  Serious: Yes (Death, Other)
  Sender: FDA-Public Use
  Company Number: HQWYE794701DEC05

PATIENT
  Sex: Male
  Weight: 40 kg

DRUGS (12)
  1. MYLOTARG [Suspect]
     Indication: ACUTE MYELOID LEUKAEMIA RECURRENT
     Route: 041
     Dates: start: 20051006, end: 20051006
  2. MYLOTARG [Suspect]
     Route: 041
     Dates: start: 20051020, end: 20051020
  3. STRONG NEO-MINOPHAGEN C [Concomitant]
     Indication: PROPHYLAXIS
     Dosage: 60 ML/DAY
     Route: 042
     Dates: start: 20051006
  4. OZEX [Concomitant]
     Indication: PROPHYLAXIS
     Dosage: 3 DF/DAY
     Route: 048
     Dates: start: 20051005
  5. ITRIZOLE [Concomitant]
     Indication: PROPHYLAXIS
     Dosage: 3 DF/DAY
     Route: 048
     Dates: start: 20051005
  6. ACLARUBICIN [Suspect]
     Indication: ACUTE MYELOID LEUKAEMIA RECURRENT
     Dosage: 700 MG/M2 TOTAL DOSE ADMINISTERED
     Route: 042
  7. FAMOTIDINE [Concomitant]
     Indication: PROPHYLAXIS
     Dosage: 20 MG/DAY
     Route: 042
     Dates: start: 20051012
  8. HYDREA [Concomitant]
     Indication: ACUTE MYELOID LEUKAEMIA
     Dosage: NOT PROVIDED
     Route: 048
     Dates: start: 20051109, end: 20051127
  9. NOVANTRONE [Suspect]
     Indication: ACUTE MYELOID LEUKAEMIA RECURRENT
     Dosage: 28 MG/M2 TOTAL DOSE ADMINISTERED
     Route: 042
  10. IDARUBICIN [Suspect]
     Indication: ACUTE MYELOID LEUKAEMIA RECURRENT
     Dosage: 108 MG/M2 TOTAL DOSE ADMINISTERED
     Route: 042
  11. URSO 250 [Concomitant]
     Indication: PROPHYLAXIS
     Route: 048
     Dates: start: 20051005
  12. BAKTAR [Concomitant]
     Indication: PROPHYLAXIS
     Dosage: 3 DF/DAY
     Route: 048
     Dates: start: 20051005

REACTIONS (2)
  - PSEUDOMONAL SEPSIS [None]
  - SUDDEN DEATH [None]
